FAERS Safety Report 21208239 (Version 1)
Quarter: 2022Q3

REPORT INFORMATION
  Report Type: Spontaneous
  Country: US (occurrence: US)
  Receive Date: 20220812
  Receipt Date: 20220812
  Transmission Date: 20221027
  Serious: No
  Sender: FDA-Public Use
  Company Number: US-MYLANLABS-2022M1084091

PATIENT
  Sex: Female

DRUGS (1)
  1. ESTRADIOL TRANSDERMAL SYSTEM [Suspect]
     Active Substance: ESTRADIOL
     Indication: Hyperhidrosis
     Dosage: 0.025 MILLIGRAM, QD, CHANGE TWICE WEEKLY
     Route: 062

REACTIONS (3)
  - Hormone level abnormal [Unknown]
  - Product adhesion issue [Unknown]
  - Off label use [Unknown]
